FAERS Safety Report 7911822-4 (Version None)
Quarter: 2011Q4

REPORT INFORMATION
  Report Type: 
  Country: None (occurrence: None)
  Receive Date: 20111114
  Receipt Date: 20111107
  Transmission Date: 20120403
  Serious: Yes (Other)
  Sender: FDA-Public Use
  Company Number: US-JNJFOC-20111103801

PATIENT
  Age: 76 Year
  Sex: Female

DRUGS (2)
  1. EXTRA STRENGTH TYLENOL [Suspect]
     Indication: COUGH
     Route: 048
     Dates: start: 20100701, end: 20111024
  2. EXTRA STRENGTH TYLENOL [Suspect]
     Indication: HEADACHE
     Route: 048
     Dates: start: 20100701, end: 20111024

REACTIONS (2)
  - DYSPNOEA [None]
  - EMPHYSEMA [None]
